FAERS Safety Report 4484875-6 (Version None)
Quarter: 2004Q3

REPORT INFORMATION
  Report Type: 
  Country: None (occurrence: None)
  Receive Date: 20040921
  Receipt Date: 20030908
  Transmission Date: 20050211
  Serious: Yes (Hospitalization)
  Sender: FDA-Public Use
  Company Number: 163-20785-03090284

PATIENT
  Age: 47 Year
  Sex: Male
  Weight: 83.0083 kg

DRUGS (9)
  1. THALOMID [Suspect]
     Indication: MULTIPLE MYELOMA
     Dosage: 200 MG, DAILY, ORAL
     Route: 048
     Dates: start: 20030409, end: 20030505
  2. DEXAMETHASONE [Suspect]
     Indication: MULTIPLE MYELOMA
     Dosage: 48 MG, DAYS 1-4, 9-12, 17-21
     Dates: start: 20030409, end: 20030505
  3. OXYCONTIN [Concomitant]
  4. PERCOCET [Concomitant]
  5. PROMETHAZINE [Concomitant]
  6. LISINOPRIL [Concomitant]
  7. ALLOPURINOL [Concomitant]
  8. LACTULOSE [Concomitant]
  9. ZOMETA [Concomitant]

REACTIONS (19)
  - ARTHRALGIA [None]
  - CHEST PAIN [None]
  - CONSTIPATION [None]
  - DEEP VEIN THROMBOSIS [None]
  - DEHYDRATION [None]
  - DISTURBANCE IN ATTENTION [None]
  - DIZZINESS [None]
  - DRY THROAT [None]
  - DYSPNOEA [None]
  - DYSPNOEA EXERTIONAL [None]
  - HYPERHIDROSIS [None]
  - INFUSION SITE PAIN [None]
  - MUSCLE SPASMS [None]
  - OEDEMA PERIPHERAL [None]
  - PAIN [None]
  - PULMONARY EMBOLISM [None]
  - VISION BLURRED [None]
  - WEIGHT [None]
  - WEIGHT INCREASED [None]
